FAERS Safety Report 15809149 (Version 1)
Quarter: 2019Q1

REPORT INFORMATION
  Report Type: Report from Study
  Country: US (occurrence: US)
  Receive Date: 20190110
  Receipt Date: 20190110
  Transmission Date: 20190417
  Serious: Yes (Death, Hospitalization)
  Sender: FDA-Public Use
  Company Number: US-ACTELION-A-US2018-181059

PATIENT
  Age: 63 Year
  Sex: Female
  Weight: 44.9 kg

DRUGS (3)
  1. VELETRI [Suspect]
     Active Substance: EPOPROSTENOL
     Indication: PULMONARY ARTERIAL HYPERTENSION
     Dosage: 36 NG/KG, PER MIN
     Route: 042
  2. TRACLEER [Suspect]
     Active Substance: BOSENTAN
     Indication: PULMONARY ARTERIAL HYPERTENSION
     Dosage: 125 MG, BID
     Route: 048
  3. XARELTO [Concomitant]
     Active Substance: RIVAROXABAN

REACTIONS (7)
  - Cardiac failure [Fatal]
  - Fluid retention [Unknown]
  - Depressed mood [Unknown]
  - Device leakage [Unknown]
  - Nausea [Unknown]
  - General physical health deterioration [Unknown]
  - Swelling [Unknown]
